FAERS Safety Report 24383839 (Version 1)
Quarter: 2024Q4

REPORT INFORMATION
  Report Type: Spontaneous
  Country: US (occurrence: US)
  Receive Date: 20241001
  Receipt Date: 20241001
  Transmission Date: 20250114
  Serious: No
  Sender: SANOFI AVENTIS
  Company Number: US-SA-2024SA278829

PATIENT
  Sex: Male

DRUGS (21)
  1. DUPIXENT [Suspect]
     Active Substance: DUPILUMAB
     Indication: Dermatitis atopic
     Dosage: 300 MG, QOW
     Route: 058
     Dates: start: 20221119
  2. ACETAMINOPHEN\CODEINE PHOSPHATE [Concomitant]
     Active Substance: ACETAMINOPHEN\CODEINE PHOSPHATE
  3. BETAMETH DIPROPIONATE [Concomitant]
  4. Betameth [Concomitant]
  5. BYSTOLIC [Concomitant]
     Active Substance: NEBIVOLOL HYDROCHLORIDE
  6. DIGOXIN [Concomitant]
     Active Substance: DIGOXIN
  7. ESZOPICLONE [Concomitant]
     Active Substance: ESZOPICLONE
  8. FINASTERIDE [Concomitant]
     Active Substance: FINASTERIDE
  9. INSULIN GLARGINE [Concomitant]
     Active Substance: INSULIN GLARGINE
  10. HAVRIX [Concomitant]
     Active Substance: HEPATITIS A VIRUS STRAIN HM175 ANTIGEN (FORMALDEHYDE INACTIVATED)
  11. LATANOPROST [Concomitant]
     Active Substance: LATANOPROST
  12. LORATADINE D [Concomitant]
     Active Substance: LORATADINE\PSEUDOEPHEDRINE SULFATE
  13. NOVOLOG [Concomitant]
     Active Substance: INSULIN ASPART
  14. OMEPRAZOLE [Concomitant]
     Active Substance: OMEPRAZOLE
  15. ROSJVASTATIN [Concomitant]
  16. SILDENAFIL [Concomitant]
     Active Substance: SILDENAFIL
  17. Tobra [Concomitant]
  18. TRAMADOL HYDROCHLORIDE [Concomitant]
     Active Substance: TRAMADOL HYDROCHLORIDE
  19. TRULICITY [Concomitant]
     Active Substance: DULAGLUTIDE
  20. TWINRIX [Concomitant]
     Active Substance: HEPATITIS A VIRUS STRAIN HM175 ANTIGEN (FORMALDEHYDE INACTIVATED)\HEPATITIS B VIRUS SUBTYPE ADW2 HBS
  21. WARFARIN [Concomitant]
     Active Substance: WARFARIN

REACTIONS (4)
  - Discomfort [Unknown]
  - Sleep disorder due to a general medical condition [Unknown]
  - Rash [Unknown]
  - Intentional dose omission [Unknown]
